FAERS Safety Report 8781772 (Version 1)
Quarter: 2012Q4

REPORT INFORMATION
  Report Type: 
  Country: US (occurrence: US)
  Receive Date: 20120913
  Receipt Date: 20120913
  Transmission Date: 20130627
  Serious: No
  Sender: FDA-Public Use
  Company Number: US-PFIZER INC-2012201412

PATIENT
  Age: 36 Year
  Sex: Male

DRUGS (6)
  1. VIAGRA [Suspect]
     Indication: ERECTILE DYSFUNCTION
     Dosage: 100 mg, once daily as needed
     Route: 048
  2. VIAGRA [Suspect]
     Dosage: UNK
     Route: 048
  3. XANAX [Suspect]
     Dosage: UNK
  4. HYDROCODONE [Suspect]
  5. LORTAB [Concomitant]
  6. SOMA [Concomitant]

REACTIONS (1)
  - Drug ineffective [Recovered/Resolved]
